FAERS Safety Report 7518167-5 (Version None)
Quarter: 2011Q2

REPORT INFORMATION
  Report Type: 
  Country: None (occurrence: None)
  Receive Date: 20110602
  Receipt Date: 20110525
  Transmission Date: 20111010
  Serious: Yes (Hospitalization, Other)
  Sender: FDA-Public Use
  Company Number: US-ABBOTT-11P-163-0728041-00

PATIENT
  Sex: Female

DRUGS (6)
  1. ENOXAPARIN [Suspect]
     Indication: THROMBOSIS PROPHYLAXIS
     Dates: start: 20110515, end: 20110523
  2. HUMIRA [Suspect]
     Indication: PSORIATIC ARTHROPATHY
     Route: 058
     Dates: start: 20110401, end: 20110514
  3. ENOXAPARIN [Suspect]
     Indication: HIP SURGERY
  4. BYETTA [Concomitant]
     Indication: PRODUCT USED FOR UNKNOWN INDICATION
  5. LEVOTHYROXINE SODIUM [Concomitant]
     Indication: PRODUCT USED FOR UNKNOWN INDICATION
  6. CLOBETASOL PROPIONATE [Concomitant]
     Indication: PRODUCT USED FOR UNKNOWN INDICATION

REACTIONS (10)
  - ARTHRALGIA [None]
  - JOINT EFFUSION [None]
  - JOINT ABSCESS [None]
  - HAEMORRHAGE [None]
  - COAGULOPATHY [None]
  - THINKING ABNORMAL [None]
  - STAPHYLOCOCCAL INFECTION [None]
  - JOINT SWELLING [None]
  - PYREXIA [None]
  - FATIGUE [None]
